FAERS Safety Report 5303652-7 (Version None)
Quarter: 2007Q2

REPORT INFORMATION
  Report Type: 
  Country: None (occurrence: None)
  Receive Date: 20070420
  Receipt Date: 20070411
  Transmission Date: 20071010
  Serious: Yes (Hospitalization, Other)
  Sender: FDA-Public Use
  Company Number: US-PFIZER INC-2007018369

PATIENT
  Sex: Female
  Weight: 77.1 kg

DRUGS (10)
  1. ZOLOFT [Suspect]
     Indication: STRESS
     Dates: start: 20020101, end: 20070301
  2. ZOLOFT [Suspect]
     Indication: MOOD SWINGS
  3. ZOLOFT [Suspect]
     Indication: HOT FLUSH
  4. ZOLOFT [Suspect]
     Indication: MENOPAUSE
  5. SERTRALINE [Suspect]
  6. ALL OTHER NON-THERAPEUTIC PRODUCTS [Suspect]
     Dosage: TEXT:UNKNOWN
  7. NAPROXEN [Concomitant]
  8. GLUCOSAMINE [Concomitant]
  9. VITAMIN D [Concomitant]
  10. CITRUCEL [Concomitant]

REACTIONS (10)
  - BEREAVEMENT REACTION [None]
  - BLOOD CHOLESTEROL INCREASED [None]
  - BONE GIANT CELL TUMOUR [None]
  - COGNITIVE DISORDER [None]
  - CRYING [None]
  - DEHYDRATION [None]
  - DIARRHOEA [None]
  - INTESTINAL FUNCTIONAL DISORDER [None]
  - OSTEOARTHRITIS [None]
  - PHARMACEUTICAL PRODUCT COMPLAINT [None]
